FAERS Safety Report 12555304 (Version 6)
Quarter: 2018Q1

REPORT INFORMATION
  Report Type: Report from Study
  Country: IL (occurrence: IL)
  Receive Date: 20160714
  Receipt Date: 20180131
  Transmission Date: 20180508
  Serious: Yes (Hospitalization)
  Sender: FDA-Public Use
  Company Number: IL-JNJFOC-20160507377

PATIENT
  Sex: Male

DRUGS (3)
  1. STELARA [Suspect]
     Active Substance: USTEKINUMAB
     Indication: PSORIASIS
     Route: 058
  2. INSULIN [Concomitant]
     Active Substance: INSULIN NOS
     Route: 065
  3. STELARA [Suspect]
     Active Substance: USTEKINUMAB
     Indication: PSORIASIS
     Route: 058
     Dates: start: 20130715

REACTIONS (7)
  - Toe amputation [Unknown]
  - Postoperative wound infection [Unknown]
  - Leg amputation [Unknown]
  - Drug ineffective [Not Recovered/Not Resolved]
  - Jaundice [Not Recovered/Not Resolved]
  - Psoriasis [Not Recovered/Not Resolved]
  - Circulatory collapse [Unknown]

NARRATIVE: CASE EVENT DATE: 2016
